FAERS Safety Report 7824013-2 (Version None)
Quarter: 2011Q4

REPORT INFORMATION
  Report Type: 
  Country: None (occurrence: None)
  Receive Date: 20111018
  Receipt Date: 20111018
  Transmission Date: 20120403
  Serious: Yes (Hospitalization)
  Sender: FDA-Public Use
  Company Number: None

PATIENT
  Sex: Male
  Weight: 62.6 kg

DRUGS (1)
  1. CISPLATIN [Suspect]
     Dosage: 340 MG
     Dates: end: 20080806

REACTIONS (7)
  - CONSTIPATION [None]
  - DYSPHAGIA [None]
  - DEHYDRATION [None]
  - MALNUTRITION [None]
  - ABDOMINAL PAIN [None]
  - NAUSEA [None]
  - VOMITING [None]
